FAERS Safety Report 8400852-4 (Version None)
Quarter: 2012Q2

REPORT INFORMATION
  Report Type: 
  Country: None (occurrence: None)
  Receive Date: 20120601
  Receipt Date: 20070118
  Transmission Date: 20120825
  Serious: Yes (Other)
  Sender: FDA-Public Use
  Company Number: JP-BRISTOL-MYERS SQUIBB COMPANY-16526253

PATIENT
  Age: 20 Year
  Sex: Female

DRUGS (1)
  1. ABILIFY [Suspect]
     Dosage: 18MG,12MG,6MG TAB,RISPERDAL-ABILIFY SWITD OVER AN APPX 2WK PERIOD,INCD 2TAB-3TABS,RESD 3-2TAB,2-1TAB
     Route: 065

REACTIONS (4)
  - TREMOR [None]
  - HALLUCINATION [None]
  - DELUSION [None]
  - NO THERAPEUTIC RESPONSE [None]
